FAERS Safety Report 4643444-5 (Version None)
Quarter: 2005Q2

REPORT INFORMATION
  Report Type: 
  Country: None (occurrence: None)
  Receive Date: 20050324
  Receipt Date: 20050222
  Transmission Date: 20051028
  Serious: No
  Sender: FDA-Public Use
  Company Number: 212591

PATIENT
  Age: 52 Year
  Sex: Female
  Weight: 53.2 kg

DRUGS (2)
  1. AVASTIN [Suspect]
     Indication: PANCREATIC CARCINOMA
     Dosage: 460 MG,SINGLE,INTRAVENOUS; 360 MG,Q2W,INTRAVENOUS
     Route: 042
     Dates: end: 20050128
  2. AVASTIN [Suspect]
     Indication: PANCREATIC CARCINOMA
     Dosage: 460 MG,SINGLE,INTRAVENOUS; 360 MG,Q2W,INTRAVENOUS
     Route: 042
     Dates: start: 20041001

REACTIONS (1)
  - NEPHROTIC SYNDROME [None]
